FAERS Safety Report 5658112-0 (Version None)
Quarter: 2008Q1

REPORT INFORMATION
  Report Type: 
  Country: None (occurrence: None)
  Receive Date: 20080310
  Receipt Date: 20061221
  Transmission Date: 20080703
  Serious: No
  Sender: FDA-Public Use
  Company Number: US-BAYER-200615077BCC

PATIENT
  Age: 59 Year
  Sex: Male
  Weight: 77 kg

DRUGS (5)
  1. ALEVE [Suspect]
     Indication: PROSTATE EXAMINATION ABNORMAL
     Dosage: TOTAL DAILY DOSE: 880 MG  UNIT DOSE: 220 MG
     Route: 048
     Dates: start: 20061221
  2. ACIPHEX [Concomitant]
  3. ACCUPRIL [Concomitant]
  4. NIACIN [Concomitant]
  5. ANTIBIOTIC [Concomitant]
     Indication: PROSTATE EXAMINATION ABNORMAL

REACTIONS (1)
  - NO ADVERSE EVENT [None]
